FAERS Safety Report 23668021 (Version 2)
Quarter: 2024Q2

REPORT INFORMATION
  Report Type: Report from Study
  Country: US (occurrence: US)
  Receive Date: 20240325
  Receipt Date: 20240602
  Transmission Date: 20240716
  Serious: No
  Sender: FDA-Public Use
  Company Number: US-AstraZeneca-CH-00588633A

PATIENT
  Sex: Male

DRUGS (1)
  1. ULTOMIRIS [Suspect]
     Active Substance: RAVULIZUMAB-CWVZ
     Indication: Product used for unknown indication
     Dosage: UNK
     Route: 065

REACTIONS (10)
  - Balance disorder [Unknown]
  - Muscular weakness [Unknown]
  - Mood altered [Unknown]
  - Fall [Unknown]
  - Diplopia [Unknown]
  - Pain in extremity [Unknown]
  - Arthralgia [Unknown]
  - Asthenia [Unknown]
  - Illness [Unknown]
  - Anger [Unknown]

NARRATIVE: CASE EVENT DATE: 20240318
